FAERS Safety Report 7982758-8 (Version None)
Quarter: 2011Q4

REPORT INFORMATION
  Report Type: 
  Country: None (occurrence: None)
  Receive Date: 20111215
  Receipt Date: 20111213
  Transmission Date: 20120403
  Serious: Yes (Other)
  Sender: FDA-Public Use
  Company Number: US-PFIZER INC-2011276324

PATIENT
  Sex: Male
  Weight: 36 kg

DRUGS (5)
  1. SINGULAIR [Concomitant]
     Indication: ASTHMA
     Dosage: 5 MG, DAILY
  2. BISACODYL [Concomitant]
     Indication: CONSTIPATION
     Dosage: 5 MG
  3. LORATADINE [Concomitant]
     Indication: ASTHMA
     Dosage: 10 MG, DAILY
  4. ACIPHEX [Concomitant]
     Dosage: 20 MG, DAILY
     Route: 048
  5. GEODON [Suspect]
     Indication: ATTENTION DEFICIT/HYPERACTIVITY DISORDER
     Dosage: 40 MG, DAILY
     Route: 048
     Dates: start: 20110401

REACTIONS (2)
  - DYSPHAGIA [None]
  - ORAL DISORDER [None]
